FAERS Safety Report 18666402 (Version 1)
Quarter: 2020Q4

REPORT INFORMATION
  Report Type: Spontaneous
  Country: US (occurrence: US)
  Receive Date: 20201227
  Receipt Date: 20201227
  Transmission Date: 20210114
  Serious: No
  Sender: FDA-Public Use
  Company Number: US-JNJFOC-20201239312

PATIENT
  Age: 60 Year
  Sex: Male
  Weight: 97.61 kg

DRUGS (1)
  1. SIMPONI [Suspect]
     Active Substance: GOLIMUMAB
     Indication: PRODUCT USED FOR UNKNOWN INDICATION
     Route: 058

REACTIONS (10)
  - Dizziness [Unknown]
  - Tremor [Recovering/Resolving]
  - Dyspnoea [Recovering/Resolving]
  - Confusional state [Unknown]
  - Oesophageal disorder [Unknown]
  - Panic attack [Recovering/Resolving]
  - Sensation of foreign body [Unknown]
  - Fatigue [Recovering/Resolving]
  - Anxiety [Recovering/Resolving]
  - Product dose omission issue [Unknown]

NARRATIVE: CASE EVENT DATE: 20201211
